FAERS Safety Report 21341027 (Version 1)
Quarter: 2022Q3

REPORT INFORMATION
  Report Type: Spontaneous
  Country: US (occurrence: US)
  Receive Date: 20220916
  Receipt Date: 20220916
  Transmission Date: 20221027
  Serious: Yes (Death, Hospitalization, Other)
  Sender: FDA-Public Use
  Company Number: US-ORG100016242-2022002407

PATIENT

DRUGS (12)
  1. EXPAREL [Suspect]
     Active Substance: BUPIVACAINE
     Indication: Local anaesthesia
     Dosage: CHEST TUBE SITES
  2. EXPAREL [Suspect]
     Active Substance: BUPIVACAINE
     Indication: Local anaesthesia
     Dosage: INCISION
  3. FENTANYL [Concomitant]
     Active Substance: FENTANYL
     Indication: Perioperative analgesia
     Route: 042
  4. ACETAMINOPHEN [Concomitant]
     Active Substance: ACETAMINOPHEN
     Indication: Perioperative analgesia
     Dosage: 2 HOURS PRIOR TO SURGERY
  5. ACETAMINOPHEN [Concomitant]
     Active Substance: ACETAMINOPHEN
     Indication: Perioperative analgesia
     Dosage: POSTOPERATIVE
  6. GABAPENTIN [Concomitant]
     Active Substance: GABAPENTIN
     Indication: Perioperative analgesia
     Dosage: 2 HOURS PRIOR TO SURGERY
  7. GABAPENTIN [Concomitant]
     Active Substance: GABAPENTIN
     Indication: Perioperative analgesia
     Dosage: POSTOPERATIVE, 100MG BID IF RENAL IMPAIRMENT
  8. DEXMEDETOMIDINE [Concomitant]
     Active Substance: DEXMEDETOMIDINE
     Indication: Postoperative analgesia
     Dosage: NOT PROVIDED
  9. LIDOCAINE [Concomitant]
     Active Substance: LIDOCAINE
     Indication: Postoperative analgesia
     Dosage: NOT PROVIDED
  10. TRAMADOL [Concomitant]
     Active Substance: TRAMADOL
     Indication: Postoperative analgesia
     Route: 048
  11. OXYCODONE [Concomitant]
     Active Substance: OXYCODONE
     Indication: Postoperative analgesia
     Route: 048
  12. UNSPECIFIED INGREDIENT [Concomitant]
     Active Substance: UNSPECIFIED INGREDIENT
     Indication: Breakthrough pain
     Route: 042

REACTIONS (8)
  - Death [Fatal]
  - Hospitalisation [Unknown]
  - Renal failure [Unknown]
  - Cerebrovascular accident [Unknown]
  - Postoperative wound infection [Unknown]
  - Pneumonia [Unknown]
  - Atrial fibrillation [Unknown]
  - Gastrointestinal procedural complication [Unknown]
